FAERS Safety Report 10408559 (Version 1)
Quarter: 2014Q3

REPORT INFORMATION
  Report Type: Spontaneous
  Country: US (occurrence: None)
  Receive Date: 20140822
  Receipt Date: 20140822
  Transmission Date: 20150326
  Serious: Yes (Disabling)
  Sender: FDA-Public Use
  Company Number: None

PATIENT
  Age: 44 Year
  Sex: Female
  Weight: 88 kg

DRUGS (1)
  1. APRI [Suspect]
     Active Substance: DESOGESTREL\ETHINYL ESTRADIOL
     Indication: MENORRHAGIA
     Dosage: 1  ONCE DAILY BY MOUTH
     Route: 048
     Dates: start: 20120924, end: 20140820

REACTIONS (13)
  - Sleep disorder [None]
  - Depression [None]
  - Visual impairment [None]
  - Hypoaesthesia [None]
  - Anxiety [None]
  - Pain in extremity [None]
  - Mood swings [None]
  - Menorrhagia [None]
  - Pain [None]
  - Chest pain [None]
  - Alopecia [None]
  - Rash [None]
  - Diarrhoea [None]

NARRATIVE: CASE EVENT DATE: 20140819
